FAERS Safety Report 17704891 (Version 1)
Quarter: 2020Q2

REPORT INFORMATION
  Report Type: Spontaneous
  Country: CN (occurrence: CN)
  Receive Date: 20200424
  Receipt Date: 20200424
  Transmission Date: 20200714
  Serious: Yes (Other)
  Sender: FDA-Public Use
  Company Number: CN-BAYER-2020-066076

PATIENT
  Age: 47 Year
  Sex: Male
  Weight: 59 kg

DRUGS (2)
  1. RESOCHIN 250 MG [Suspect]
     Active Substance: CHLOROQUINE
     Indication: PNEUMONIA VIRAL
     Dosage: 0.5 G, BID
     Route: 048
     Dates: start: 20200212, end: 20200217
  2. RESOCHIN 250 MG [Suspect]
     Active Substance: CHLOROQUINE
     Indication: CORONAVIRUS INFECTION

REACTIONS (3)
  - Product use in unapproved indication [None]
  - Electrocardiogram QT prolonged [Recovered/Resolved]
  - Off label use [None]

NARRATIVE: CASE EVENT DATE: 20200212
